FAERS Safety Report 8422837-4 (Version None)
Quarter: 2012Q2

REPORT INFORMATION
  Report Type: 
  Country: None (occurrence: None)
  Receive Date: 20120608
  Receipt Date: 20120605
  Transmission Date: 20120825
  Serious: Yes (Hospitalization)
  Sender: FDA-Public Use
  Company Number: CA-ALLERGAN-1114495US

PATIENT
  Age: 76 Year
  Sex: Female
  Weight: 92.5 kg

DRUGS (2)
  1. CELEBREX [Concomitant]
     Indication: OSTEOARTHRITIS
     Dosage: 200 MG, PRN
     Route: 048
     Dates: start: 20091001
  2. BOTULINUM TOXIN TYPE A [Suspect]
     Indication: HYPERTONIC BLADDER
     Dosage: UNK
     Dates: start: 20110712, end: 20110712

REACTIONS (3)
  - PERONEAL NERVE PALSY [None]
  - OSTEOARTHRITIS [None]
  - URINARY RETENTION [None]
